FAERS Safety Report 21529422 (Version 1)
Quarter: 2022Q4

REPORT INFORMATION
  Report Type: Spontaneous
  Country: CA (occurrence: CA)
  Receive Date: 20221031
  Receipt Date: 20221031
  Transmission Date: 20230113
  Serious: Yes (Hospitalization, Other)
  Sender: FDA-Public Use
  Company Number: CA-BAYER-2022P019106

PATIENT
  Age: 22 Year
  Sex: Female

DRUGS (2)
  1. YASMIN [Suspect]
     Active Substance: DROSPIRENONE\ETHINYL ESTRADIOL
     Indication: Contraception
     Dosage: UNK
     Route: 048
     Dates: start: 20090828, end: 20110821
  2. MICRONOR [Concomitant]
     Active Substance: NORETHINDRONE
     Indication: Contraception

REACTIONS (4)
  - Pulmonary embolism [None]
  - Chest pain [None]
  - Dyspnoea [None]
  - Colitis ulcerative [None]

NARRATIVE: CASE EVENT DATE: 20100810
